FAERS Safety Report 5052823-6 (Version None)
Quarter: 2006Q3

REPORT INFORMATION
  Report Type: 
  Country: None (occurrence: None)
  Receive Date: 20060717
  Receipt Date: 20060706
  Transmission Date: 20061208
  Serious: Yes (Death, Hospitalization)
  Sender: FDA-Public Use
  Company Number: US-JNJFOC-20060203724

PATIENT
  Sex: Female

DRUGS (12)
  1. REMICADE [Suspect]
     Dosage: 4 DOSES RECEIVED
     Route: 042
  2. REMICADE [Suspect]
     Dosage: 4 DOSES RECEIVED
     Route: 042
  3. REMICADE [Suspect]
     Indication: RHEUMATOID ARTHRITIS
     Dosage: 19 DOSES RECEIVED
     Route: 042
  4. METHOTREXATE [Suspect]
     Indication: RHEUMATOID ARTHRITIS
  5. FOLIC ACID [Concomitant]
  6. PREDNISONE [Concomitant]
     Indication: RHEUMATOID ARTHRITIS
  7. SYNTHROID [Concomitant]
     Indication: HYPOTHYROIDISM
  8. ASPIRIN [Concomitant]
  9. VITAMINS [Concomitant]
  10. ALBUTEROL SPIROS [Concomitant]
     Route: 055
  11. ATROVENT [Concomitant]
  12. PROTONIX [Concomitant]

REACTIONS (7)
  - ANAEMIA [None]
  - CHOLECYSTITIS ACUTE [None]
  - DIVERTICULAR PERFORATION [None]
  - INCISION SITE ABSCESS [None]
  - PANCREATIC CARCINOMA METASTATIC [None]
  - PERITONITIS [None]
  - URINARY TRACT INFECTION [None]
